FAERS Safety Report 5067731-4 (Version None)
Quarter: 2006Q3

REPORT INFORMATION
  Report Type: 
  Country: None (occurrence: None)
  Receive Date: 20060731
  Receipt Date: 20060714
  Transmission Date: 20061208
  Serious: Yes (Other)
  Sender: FDA-Public Use
  Company Number: 2006-07-0995

PATIENT
  Age: 12 Year
  Sex: Male
  Weight: 33 kg

DRUGS (2)
  1. LORATADINE [Suspect]
     Dosage: ORAL
     Route: 048
  2. ALBUTEROL [Suspect]
     Indication: ASTHMA
     Dosage: ORAL
     Route: 048

REACTIONS (7)
  - BLOOD PRESSURE DECREASED [None]
  - CONDITION AGGRAVATED [None]
  - COUGH [None]
  - HELICOBACTER GASTRITIS [None]
  - OESOPHAGEAL ACHALASIA [None]
  - PNEUMONIA [None]
  - REFLUX OESOPHAGITIS [None]
